FAERS Safety Report 12562307 (Version 2)
Quarter: 2016Q3

REPORT INFORMATION
  Report Type: Spontaneous
  Country: US (occurrence: US)
  Receive Date: 20160715
  Receipt Date: 20160815
  Transmission Date: 20161109
  Serious: Yes (Other)
  Sender: FDA-Public Use
  Company Number: US-MUNDIPHARMA DS AND PHARMACOVIGILANCE-GBR-2016-0039149

PATIENT
  Age: 66 Year
  Sex: Male

DRUGS (19)
  1. NON-PMN TRAMADOL [Suspect]
     Active Substance: TRAMADOL
     Indication: PAIN MANAGEMENT
     Route: 065
  2. MORPHINE SULFATE (SIMILAR TO NDA 19-516) [Concomitant]
     Active Substance: MORPHINE SULFATE
  3. FENTANYL. [Concomitant]
     Active Substance: FENTANYL
  4. AMITRIPTYLINE [Concomitant]
     Active Substance: AMITRIPTYLINE
  5. LIDOCAINE. [Suspect]
     Active Substance: LIDOCAINE
     Indication: PAIN MANAGEMENT
     Dosage: 1 DF, UNK
     Route: 061
  6. BUPRENORPHINE (SIMILAR TO NDA 21-306) [Suspect]
     Active Substance: BUPRENORPHINE
     Indication: PAIN MANAGEMENT
     Dosage: 20 MCG, UNK
     Route: 062
  7. METHADONE [Concomitant]
     Active Substance: METHADONE HYDROCHLORIDE
  8. VENLAFAXINE [Concomitant]
     Active Substance: VENLAFAXINE HYDROCHLORIDE
  9. OXYCODONE HYDROCHLORIDE. [Concomitant]
     Active Substance: OXYCODONE HYDROCHLORIDE
  10. GABAPENTIN. [Concomitant]
     Active Substance: GABAPENTIN
  11. TROLAMINE [Concomitant]
     Active Substance: TROLAMINE
  12. IBUPROFEN. [Concomitant]
     Active Substance: IBUPROFEN
  13. HYDROCODONE [Concomitant]
     Active Substance: HYDROCODONE
  14. DULOXETINE. [Concomitant]
     Active Substance: DULOXETINE
  15. BACLOFEN. [Concomitant]
     Active Substance: BACLOFEN
  16. MACROGOL [Concomitant]
     Active Substance: POLYETHYLENE GLYCOLS
  17. TIZANIDINE. [Concomitant]
     Active Substance: TIZANIDINE
  18. CYCLOBENZAPRINE [Concomitant]
     Active Substance: CYCLOBENZAPRINE
  19. METHOCARBAMOL. [Concomitant]
     Active Substance: METHOCARBAMOL

REACTIONS (11)
  - Mental impairment [Recovered/Resolved]
  - Incorrect drug administration duration [Recovered/Resolved]
  - Lethargy [Recovered/Resolved]
  - Drug ineffective [Recovered/Resolved]
  - Mental disorder [Recovered/Resolved]
  - Application site pruritus [Recovered/Resolved]
  - Dyspnoea [Recovered/Resolved]
  - Application site irritation [Recovered/Resolved]
  - Product use issue [Recovered/Resolved]
  - Pruritus generalised [Recovered/Resolved]
  - Somnolence [Recovered/Resolved]
